FAERS Safety Report 7395810-5 (Version None)
Quarter: 2011Q2

REPORT INFORMATION
  Report Type: 
  Country: None (occurrence: None)
  Receive Date: 20110405
  Receipt Date: 20110329
  Transmission Date: 20111010
  Serious: Yes (Other)
  Sender: FDA-Public Use
  Company Number: US-RB-020946-11

PATIENT
  Sex: Female

DRUGS (4)
  1. SUBOXONE [Suspect]
     Indication: PRODUCT USED FOR UNKNOWN INDICATION
     Dosage: DOSAGE INFORMATION UNKNOWN / SUBLINGUAL FILM
     Route: 065
  2. METHAMPHETAMINE [Suspect]
     Indication: PRODUCT USED FOR UNKNOWN INDICATION
     Dosage: UNKNOWN DOSING DETAILS
     Route: 065
  3. SUBOXONE [Suspect]
     Indication: PRODUCT USED FOR UNKNOWN INDICATION
     Dosage: DOSAGE INFORMATION UNKNOWN
     Route: 065
  4. HYDROCODONE [Suspect]
     Indication: PRODUCT USED FOR UNKNOWN INDICATION
     Dosage: DOSING DETAILS UNKNOWN
     Route: 065

REACTIONS (9)
  - DEPRESSION [None]
  - SUBSTANCE ABUSE [None]
  - INTENTIONAL DRUG MISUSE [None]
  - HYPERSOMNIA [None]
  - PSYCHOTIC DISORDER [None]
  - OEDEMA PERIPHERAL [None]
  - PAIN IN EXTREMITY [None]
  - DRUG DIVERSION [None]
  - FOOD CRAVING [None]
